FAERS Safety Report 8885759 (Version 3)
Quarter: 2012Q4

REPORT INFORMATION
  Report Type: 
  Country: US (occurrence: US)
  Receive Date: 20121101
  Receipt Date: 20121109
  Transmission Date: 20130627
  Serious: No
  Sender: FDA-Public Use
  Company Number: US-PFIZER INC-2012268496

PATIENT
  Age: 75 Year
  Sex: Female
  Weight: 108 kg

DRUGS (8)
  1. GABAPENTIN [Suspect]
     Indication: SCIATICA
     Dosage: 100 mg, 3x/day
     Dates: start: 2010, end: 2012
  2. GABAPENTIN [Suspect]
     Dosage: 300 mg, 3x/day
     Dates: start: 2012
  3. AZATHIOPRINE [Concomitant]
     Dosage: 50 mg, 2x/day
  4. AMLODIPINE [Concomitant]
     Dosage: UNK
  5. ALBUTEROL [Concomitant]
     Dosage: UNK
  6. LISINOPRIL [Concomitant]
     Dosage: UNK
  7. FUROSEMIDE [Concomitant]
     Dosage: UNK
  8. OXYBUTYNIN [Concomitant]
     Dosage: UNK

REACTIONS (5)
  - Muscular weakness [Unknown]
  - Visual impairment [Unknown]
  - Eye pruritus [Unknown]
  - Drug dispensing error [Unknown]
  - Incorrect dose administered [Unknown]
